FAERS Safety Report 11843477 (Version 12)
Quarter: 2016Q2

REPORT INFORMATION
  Report Type: Spontaneous
  Country: GB (occurrence: GB)
  Receive Date: 20151217
  Receipt Date: 20160512
  Transmission Date: 20160815
  Serious: Yes (Other)
  Sender: FDA-Public Use
  Company Number: GB-AMGEN-GBRSP2015134364

PATIENT
  Age: 75 Year
  Sex: Male

DRUGS (7)
  1. NEULASTA [Suspect]
     Active Substance: PEGFILGRASTIM
     Indication: PRODUCT USED FOR UNKNOWN INDICATION
     Dosage: UNK
     Route: 065
  2. LANSOPRAZOLE. [Concomitant]
     Active Substance: LANSOPRAZOLE
     Dosage: UNK
  3. DEXAMETHASONE. [Concomitant]
     Active Substance: DEXAMETHASONE
     Dosage: UNK
  4. DOCETAXEL. [Concomitant]
     Active Substance: DOCETAXEL
     Dosage: UNK
  5. DOMPERIDONE [Concomitant]
     Active Substance: DOMPERIDONE
     Dosage: UNK
  6. ONDANSETRON [Concomitant]
     Active Substance: ONDANSETRON
     Dosage: UNK
  7. PREDNISOLONE. [Concomitant]
     Active Substance: PREDNISOLONE
     Dosage: UNK

REACTIONS (21)
  - Rectal haemorrhage [Unknown]
  - Adverse event [Unknown]
  - Chest discomfort [Unknown]
  - Diarrhoea [Unknown]
  - Dyspnoea [Unknown]
  - Nasal congestion [Unknown]
  - Decreased appetite [Unknown]
  - Neuropathy peripheral [Unknown]
  - Dry skin [Unknown]
  - Asthenia [Unknown]
  - Alopecia [Unknown]
  - Dyspnoea exertional [Unknown]
  - Epistaxis [Recovered/Resolved]
  - Toxicity to various agents [Unknown]
  - Fatigue [Unknown]
  - Body temperature abnormal [Unknown]
  - Paraesthesia [Not Recovered/Not Resolved]
  - Micturition disorder [Unknown]
  - Mucosal inflammation [Unknown]
  - Constipation [Unknown]
  - Pain in extremity [Unknown]
